FAERS Safety Report 21296722 (Version 8)
Quarter: 2025Q1

REPORT INFORMATION
  Report Type: Spontaneous
  Country: JP (occurrence: JP)
  Receive Date: 20220906
  Receipt Date: 20250220
  Transmission Date: 20250409
  Serious: Yes (Death, Other)
  Sender: JOHNSON AND JOHNSON
  Company Number: JP-JNJFOC-20220861275

PATIENT
  Age: 43 Year
  Sex: Female
  Weight: 41.3 kg

DRUGS (10)
  1. UPTRAVI [Suspect]
     Active Substance: SELEXIPAG
     Indication: Pulmonary arterial hypertension
     Route: 048
  2. OPSUMIT [Concomitant]
     Active Substance: MACITENTAN
     Indication: Pulmonary arterial hypertension
     Route: 048
  3. ADEMPAS [Concomitant]
     Active Substance: RIOCIGUAT
     Indication: Pulmonary arterial hypertension
     Route: 048
     Dates: start: 201907
  4. ADEMPAS [Concomitant]
     Active Substance: RIOCIGUAT
     Route: 048
  5. DOBUTAMINE [Concomitant]
     Active Substance: DOBUTAMINE HYDROCHLORIDE
  6. EPOPROSTENOL [Concomitant]
     Active Substance: EPOPROSTENOL
     Indication: Pulmonary arterial hypertension
     Route: 041
  7. RIOCIGUAT [Concomitant]
     Active Substance: RIOCIGUAT
     Indication: Pulmonary arterial hypertension
     Dosage: 1.5MG-7.5MG
     Route: 048
  8. TREPROSTINIL [Concomitant]
     Active Substance: TREPROSTINIL
     Indication: Pulmonary arterial hypertension
     Route: 058
     Dates: start: 202008
  9. NOREPINEPHRINE BITARTRATE [Concomitant]
     Active Substance: NOREPINEPHRINE BITARTRATE
  10. TREPROSTINIL [Concomitant]
     Active Substance: TREPROSTINIL
     Indication: Pulmonary arterial hypertension
     Route: 058

REACTIONS (25)
  - Right ventricular failure [Fatal]
  - Congestive hepatopathy [Fatal]
  - Pulmonary arterial hypertension [Fatal]
  - Adenoma benign [Fatal]
  - Coronary artery dissection [Fatal]
  - Circulatory collapse [Fatal]
  - Peritoneal haematoma [Unknown]
  - Pericardial effusion [Unknown]
  - Hypoxic-ischaemic encephalopathy [Unknown]
  - Cardio-respiratory arrest [Unknown]
  - Gastric haemorrhage [Unknown]
  - Ascites [Unknown]
  - Labile blood pressure [Unknown]
  - Congestive hepatopathy [Unknown]
  - Pulmonary alveolar haemorrhage [Unknown]
  - Hepatic cyst [Unknown]
  - Therapeutic product effect incomplete [Not Recovered/Not Resolved]
  - Pleural effusion [Unknown]
  - Marrow hyperplasia [Unknown]
  - Extramedullary haemopoiesis [Unknown]
  - Haemorrhagic diathesis [Unknown]
  - Generalised oedema [Unknown]
  - Spleen congestion [Unknown]
  - Epistaxis [Unknown]
  - Gastrointestinal tract adenoma [Unknown]

NARRATIVE: CASE EVENT DATE: 20190501
